FAERS Safety Report 4984682-1 (Version None)
Quarter: 2006Q2

REPORT INFORMATION
  Report Type: 
  Country: None (occurrence: None)
  Receive Date: 20060427
  Receipt Date: 20031219
  Transmission Date: 20061013
  Serious: Yes (Hospitalization, Disabling, Other)
  Sender: FDA-Public Use
  Company Number: US-MERCK-0312USA02227

PATIENT
  Age: 54 Year
  Sex: Female
  Weight: 95 kg

DRUGS (6)
  1. VIOXX [Suspect]
     Indication: ARTHRITIS
     Route: 048
     Dates: start: 20010701, end: 20020701
  2. NORVASC [Concomitant]
     Indication: BLOOD PRESSURE
     Route: 065
     Dates: start: 19920101
  3. LIPITOR [Concomitant]
     Indication: BLOOD CHOLESTEROL INCREASED
     Route: 065
     Dates: end: 20010601
  4. CALTRATE + D [Concomitant]
     Route: 065
  5. ECOTRIN [Concomitant]
     Route: 065
  6. PLAVIX [Concomitant]
     Route: 065

REACTIONS (20)
  - ACUTE CORONARY SYNDROME [None]
  - ACUTE SINUSITIS [None]
  - ANXIETY [None]
  - BRADYCARDIA [None]
  - CAROTID ARTERY STENOSIS [None]
  - CHOLECYSTITIS CHRONIC [None]
  - CHOLELITHIASIS [None]
  - EYE HAEMORRHAGE [None]
  - EYE INJURY [None]
  - HYPERTENSION [None]
  - ISCHAEMIC STROKE [None]
  - NYSTAGMUS [None]
  - PANCREATITIS [None]
  - PNEUMOPERITONEUM [None]
  - SINUS TACHYCARDIA [None]
  - STRESS [None]
  - SYNCOPE VASOVAGAL [None]
  - TRANSIENT ISCHAEMIC ATTACK [None]
  - TREATMENT NONCOMPLIANCE [None]
  - VERTIGO POSITIONAL [None]
